FAERS Safety Report 4405817-5 (Version None)
Quarter: 2004Q3

REPORT INFORMATION
  Report Type: 
  Country: None (occurrence: None)
  Receive Date: 20040723
  Receipt Date: 20031230
  Transmission Date: 20050211
  Serious: Yes (Other)
  Sender: FDA-Public Use
  Company Number: US-GLAXOSMITHKLINE-A0490865A

PATIENT
  Age: 57 Year
  Sex: Female

DRUGS (9)
  1. AVANDIA [Suspect]
     Dosage: 4MG TWICE PER DAY
     Route: 048
     Dates: start: 20030501, end: 20030801
  2. GLUCOPHAGE [Concomitant]
  3. GLUCOTROL [Concomitant]
  4. ZESTRIL [Concomitant]
  5. LASIX [Concomitant]
  6. NEURONTIN [Concomitant]
  7. METOPROLOL SUCCINATE [Concomitant]
  8. DITROPAN [Concomitant]
  9. HYDROXYZINE [Concomitant]

REACTIONS (1)
  - FLUID RETENTION [None]
